FAERS Safety Report 18589154 (Version 1)
Quarter: 2020Q4

REPORT INFORMATION
  Report Type: Report from Study
  Country: US (occurrence: US)
  Receive Date: 20201208
  Receipt Date: 20201208
  Transmission Date: 20210114
  Serious: Yes (Hospitalization)
  Sender: FDA-Public Use
  Company Number: US-GILEAD-2020-0507864

PATIENT
  Age: 39 Year
  Sex: Female

DRUGS (26)
  1. CREON [Concomitant]
     Active Substance: PANCRELIPASE AMYLASE\PANCRELIPASE LIPASE\PANCRELIPASE PROTEASE
  2. LANTUS [Concomitant]
     Active Substance: INSULIN GLARGINE
  3. LINZESS [Concomitant]
     Active Substance: LINACLOTIDE
  4. SPIRIVA [Concomitant]
     Active Substance: TIOTROPIUM BROMIDE MONOHYDRATE
  5. VITAMIN D NOS [Concomitant]
     Active Substance: VITAMIN D NOS
  6. ZYRTEC [Concomitant]
     Active Substance: CETIRIZINE HYDROCHLORIDE
  7. HYDROCHLOROTHIAZIDE. [Concomitant]
     Active Substance: HYDROCHLOROTHIAZIDE
  8. MONTELUKAST [Concomitant]
     Active Substance: MONTELUKAST SODIUM
  9. NOVOLOG [Concomitant]
     Active Substance: INSULIN ASPART
  10. POTASSIUM [Concomitant]
     Active Substance: POTASSIUM
  11. POLYETHYLENE GLYCOL [MACROGOL] [Concomitant]
     Active Substance: POLYETHYLENE GLYCOLS
  12. SYMDEKO [Concomitant]
     Active Substance: IVACAFTOR\TEZACAFTOR
  13. AZITHROMYCIN ANHYDROUS. [Concomitant]
     Active Substance: AZITHROMYCIN ANHYDROUS
  14. COLISTIMETHATE SODIUM. [Concomitant]
     Active Substance: COLISTIMETHATE SODIUM
  15. IRON [Concomitant]
     Active Substance: IRON
  16. ULORIC [Concomitant]
     Active Substance: FEBUXOSTAT
  17. FLONASE [MOMETASONE FUROATE] [Concomitant]
     Active Substance: MOMETASONE FUROATE
  18. FOSAMAX [Concomitant]
     Active Substance: ALENDRONATE SODIUM
  19. PERTZYE [Concomitant]
     Active Substance: PANCRELIPASE AMYLASE\PANCRELIPASE LIPASE\PANCRELIPASE PROTEASE
  20. ADVAIR HFA [Concomitant]
     Active Substance: FLUTICASONE PROPIONATE\SALMETEROL XINAFOATE
     Dosage: UNK
  21. COLACE [Concomitant]
     Active Substance: DOCUSATE SODIUM
  22. LISINOPRIL. [Concomitant]
     Active Substance: LISINOPRIL
  23. PROTONIX [OMEPRAZOLE] [Concomitant]
     Active Substance: OMEPRAZOLE
  24. AZTREONAM LYSINE [Suspect]
     Active Substance: AZTREONAM LYSINE
     Indication: CYSTIC FIBROSIS LUNG
     Dosage: 1 DOSAGE FORM (1 ML), TID FOR 28 DAYS ON AND 28 DAYS OFF
     Route: 055
     Dates: start: 20131030
  25. BIAXIN [Concomitant]
     Active Substance: CLARITHROMYCIN
  26. MIRAPEX [Concomitant]
     Active Substance: PRAMIPEXOLE DIHYDROCHLORIDE

REACTIONS (2)
  - Off label use [Not Recovered/Not Resolved]
  - Lower respiratory tract congestion [Not Recovered/Not Resolved]

NARRATIVE: CASE EVENT DATE: 20131030
